FAERS Safety Report 5251932-6 (Version None)
Quarter: 2007Q1

REPORT INFORMATION
  Report Type: 
  Country: None (occurrence: None)
  Receive Date: 20070223
  Receipt Date: 20070209
  Transmission Date: 20070707
  Serious: Yes (Other)
  Sender: FDA-Public Use
  Company Number: 236406

PATIENT
  Sex: 0

DRUGS (1)
  1. AVASTIN [Suspect]
     Indication: COLORECTAL CANCER METASTATIC

REACTIONS (5)
  - ABASIA [None]
  - APHASIA [None]
  - DYSSTASIA [None]
  - FACIAL PALSY [None]
  - NEUROLOGICAL SYMPTOM [None]
